FAERS Safety Report 6346831-2 (Version None)
Quarter: 2009Q3

REPORT INFORMATION
  Report Type: 
  Country: None (occurrence: None)
  Receive Date: 20090910
  Receipt Date: 20090831
  Transmission Date: 20100115
  Serious: Yes (Hospitalization)
  Sender: FDA-Public Use
  Company Number: US-BIOGENIDEC-2009BI021976

PATIENT
  Age: 55 Year
  Sex: Male
  Weight: 127 kg

DRUGS (6)
  1. AVONEX [Suspect]
     Indication: MULTIPLE SCLEROSIS
     Route: 030
     Dates: start: 20070501
  2. AVONEX [Suspect]
     Route: 030
     Dates: start: 20031101
  3. GLIPIZIDE [Concomitant]
  4. PROCARDIA [Concomitant]
  5. DYAZIDE [Concomitant]
  6. CHOLESTEROL MEDICINE [NOS] [Concomitant]

REACTIONS (6)
  - CEREBRAL ATROPHY [None]
  - DEHYDRATION [None]
  - HEAT STROKE [None]
  - MUSCULAR WEAKNESS [None]
  - SPINAL CORD DISORDER [None]
  - SPINAL OSTEOARTHRITIS [None]
